FAERS Safety Report 20978449 (Version 1)
Quarter: 2022Q2

REPORT INFORMATION
  Report Type: Spontaneous
  Country: US (occurrence: US)
  Receive Date: 20220618
  Receipt Date: 20220618
  Transmission Date: 20220721
  Serious: No
  Sender: FDA-Public Use
  Company Number: US-SANOFI-01144241

PATIENT
  Age: 62 Year
  Sex: Female

DRUGS (1)
  1. DUPIXENT [Suspect]
     Active Substance: DUPILUMAB
     Indication: Eczema
     Dosage: DRUG STRUCTURE DOSAGE : ONCE DRUG INTERVAL DOSAGE : EVERY TWO WEEKS DRUG TREATMENT DURATION:
     Dates: start: 2019

REACTIONS (4)
  - Trigger finger [Unknown]
  - Musculoskeletal stiffness [Unknown]
  - Dermatitis [Unknown]
  - Weight increased [Unknown]

NARRATIVE: CASE EVENT DATE: 20220101
